FAERS Safety Report 23438860 (Version 1)
Quarter: 2024Q1

REPORT INFORMATION
  Report Type: Spontaneous
  Country: NL (occurrence: NL)
  Receive Date: 20240124
  Receipt Date: 20240124
  Transmission Date: 20240410
  Serious: Yes (Other)
  Sender: FDA-Public Use
  Company Number: NL-ORGANON-O2401NLD001086

PATIENT
  Sex: Female

DRUGS (1)
  1. ETONOGESTREL [Suspect]
     Active Substance: ETONOGESTREL
     Dosage: 1 IMPLANT
     Route: 059
     Dates: start: 20231018

REACTIONS (4)
  - Pregnancy with implant contraceptive [Unknown]
  - Vaginal haemorrhage [Recovered/Resolved]
  - Menstruation delayed [Recovered/Resolved]
  - Unintended pregnancy [Unknown]

NARRATIVE: CASE EVENT DATE: 20231118
